FAERS Safety Report 16997318 (Version 1)
Quarter: 2019Q4

REPORT INFORMATION
  Report Type: Spontaneous
  Country: US (occurrence: US)
  Receive Date: 20191106
  Receipt Date: 20191106
  Transmission Date: 20200122
  Serious: Yes (Other)
  Sender: FDA-Public Use
  Company Number: US-STRIDES ARCOLAB LIMITED-2019SP006887

PATIENT
  Sex: Male

DRUGS (8)
  1. GABAPENTIN. [Suspect]
     Active Substance: GABAPENTIN
     Indication: PHOTOPHOBIA
     Dosage: UNK
     Route: 065
  2. GABAPENTIN. [Suspect]
     Active Substance: GABAPENTIN
     Indication: FOREIGN BODY SENSATION IN EYES
  3. ARTIFICIAL TEARS                   /00222401/ [Suspect]
     Active Substance: PROPYLENE GLYCOL
     Indication: FOREIGN BODY SENSATION IN EYES
     Dosage: UNK
     Route: 065
  4. PREGABALIN. [Suspect]
     Active Substance: PREGABALIN
     Indication: PHOTOPHOBIA
  5. DICLOFENAC [Suspect]
     Active Substance: DICLOFENAC
     Indication: FOREIGN BODY SENSATION IN EYES
     Dosage: UNK
     Route: 061
  6. DICLOFENAC [Suspect]
     Active Substance: DICLOFENAC
     Indication: PHOTOPHOBIA
  7. ARTIFICIAL TEARS                   /00222401/ [Suspect]
     Active Substance: PROPYLENE GLYCOL
     Indication: PHOTOPHOBIA
  8. PREGABALIN. [Suspect]
     Active Substance: PREGABALIN
     Indication: FOREIGN BODY SENSATION IN EYES
     Dosage: UNK
     Route: 065

REACTIONS (1)
  - Drug ineffective for unapproved indication [Unknown]
